FAERS Safety Report 5222938-8 (Version None)
Quarter: 2007Q1

REPORT INFORMATION
  Report Type: 
  Country: None (occurrence: None)
  Receive Date: 20070129
  Receipt Date: 20070119
  Transmission Date: 20070707
  Serious: Yes (Hospitalization)
  Sender: FDA-Public Use
  Company Number: US-PFIZER INC-2007005986

PATIENT
  Sex: Male

DRUGS (2)
  1. SOLU-MEDROL [Suspect]
  2. BETASERON [Suspect]
     Indication: MULTIPLE SCLEROSIS
     Route: 058
     Dates: start: 20040901

REACTIONS (2)
  - DYSPNOEA [None]
  - PAIN IN EXTREMITY [None]
